FAERS Safety Report 24814755 (Version 1)
Quarter: 2025Q1

REPORT INFORMATION
  Report Type: Spontaneous
  Country: US (occurrence: None)
  Receive Date: 20250106
  Receipt Date: 20250106
  Transmission Date: 20250409
  Serious: Yes (Disabling, Other)
  Sender: FDA-CTU
  Company Number: None

PATIENT
  Age: 37 Year
  Sex: Male
  Weight: 92.25 kg

DRUGS (11)
  1. SERTRALINE [Suspect]
     Active Substance: SERTRALINE HYDROCHLORIDE
     Indication: Depression
     Dates: start: 20240610, end: 20240910
  2. PRISTIQ EXTENDED-RELEASE [Concomitant]
     Active Substance: DESVENLAFAXINE SUCCINATE
  3. TRAZODONE [Concomitant]
     Active Substance: TRAZODONE HYDROCHLORIDE
  4. UNSPECIFIED INGREDIENT [Concomitant]
     Active Substance: UNSPECIFIED INGREDIENT
  5. LORAZEPAM [Concomitant]
     Active Substance: LORAZEPAM
  6. OMEGA 3 [Concomitant]
     Active Substance: CAPSAICIN
  7. CITRULLINE [Concomitant]
     Active Substance: CITRULLINE
  8. ARGININE [Concomitant]
     Active Substance: ARGININE
  9. COENZYME Q10 [Concomitant]
     Active Substance: DIETARY SUPPLEMENT\UBIDECARENONE
  10. VITAMINS [Concomitant]
     Active Substance: VITAMINS
  11. HERBALS\TURMERIC [Concomitant]
     Active Substance: HERBALS\TURMERIC

REACTIONS (6)
  - Genital hypoaesthesia [None]
  - Loss of libido [None]
  - Impaired quality of life [None]
  - Loss of personal independence in daily activities [None]
  - Weight increased [None]
  - Nightmare [None]

NARRATIVE: CASE EVENT DATE: 20240615
